FAERS Safety Report 4555874-0 (Version None)
Quarter: 2005Q1

REPORT INFORMATION
  Report Type: 
  Country: None (occurrence: None)
  Receive Date: 20050111
  Receipt Date: 20041209
  Transmission Date: 20050727
  Serious: No
  Sender: FDA-Public Use
  Company Number: 2004S1000277

PATIENT
  Sex: Male
  Weight: 49 kg

DRUGS (2)
  1. CUBICIN [Suspect]
     Indication: BACTERIA STOOL IDENTIFIED
     Dosage: 175 MG;Q48H;IV
     Route: 042
     Dates: start: 20040101
  2. CUBICIN [Suspect]
     Indication: PATHOGEN RESISTANCE
     Dosage: 175 MG;Q48H;IV
     Route: 042
     Dates: start: 20040101

REACTIONS (2)
  - DYSPNOEA EXACERBATED [None]
  - PYREXIA [None]
